FAERS Safety Report 12103933 (Version 1)
Quarter: 2016Q1

REPORT INFORMATION
  Report Type: Spontaneous
  Country: US (occurrence: US)
  Receive Date: 20160223
  Receipt Date: 20160223
  Transmission Date: 20160526
  Serious: No
  Sender: FDA-Public Use
  Company Number: US-TEVA-617114USA

PATIENT
  Age: 75 Year
  Sex: Female
  Weight: 86.26 kg

DRUGS (1)
  1. BENAZEPRIL [Suspect]
     Active Substance: BENAZEPRIL HYDROCHLORIDE
     Indication: HYPERTENSION
     Dosage: FREQUENCY NOT PROVIDED
     Route: 065
     Dates: start: 20151207

REACTIONS (4)
  - Balance disorder [Unknown]
  - Feeling abnormal [Unknown]
  - Anxiety [Unknown]
  - Malaise [Unknown]

NARRATIVE: CASE EVENT DATE: 20151207
